FAERS Safety Report 8848567 (Version 11)
Quarter: 2013Q4

REPORT INFORMATION
  Report Type: Report from Study
  Country: US (occurrence: US)
  Receive Date: 20121018
  Receipt Date: 20131107
  Transmission Date: 20140711
  Serious: Yes (Hospitalization, Disabling, Other)
  Sender: FDA-Public Use
  Company Number: US-GLAXOSMITHKLINE-A0997870A

PATIENT
  Sex: Female

DRUGS (5)
  1. ADVAIR [Suspect]
     Indication: CHRONIC OBSTRUCTIVE PULMONARY DISEASE
     Route: 065
  2. ALBUTEROL [Suspect]
     Indication: CHRONIC OBSTRUCTIVE PULMONARY DISEASE
     Route: 065
  3. NEURONTIN [Suspect]
     Indication: PRODUCT USED FOR UNKNOWN INDICATION
  4. SUNSCREEN [Suspect]
     Indication: PRODUCT USED FOR UNKNOWN INDICATION
     Route: 065
  5. INSULIN [Concomitant]

REACTIONS (16)
  - Investigation [Unknown]
  - Convulsion [Unknown]
  - Haemorrhage [Unknown]
  - Basal cell carcinoma [Unknown]
  - Von Willebrand^s disease [Unknown]
  - Type 2 diabetes mellitus [Unknown]
  - Lung neoplasm malignant [Unknown]
  - Fall [Unknown]
  - Respiratory disorder [Unknown]
  - Asthma [Unknown]
  - Surgery [Unknown]
  - General physical health deterioration [Unknown]
  - Central venous catheter removal [Unknown]
  - Exposure to mould [Unknown]
  - Blindness [Unknown]
  - Visual impairment [Unknown]
